FAERS Safety Report 6137608-1 (Version None)
Quarter: 2009Q1

REPORT INFORMATION
  Report Type: 
  Country: None (occurrence: None)
  Receive Date: 20090327
  Receipt Date: 20090327
  Transmission Date: 20090719
  Serious: Yes (Hospitalization)
  Sender: FDA-Public Use
  Company Number: None

PATIENT
  Sex: Male
  Weight: 86.1834 kg

DRUGS (2)
  1. SUTENT [Suspect]
     Indication: GASTROINTESTINAL STROMAL TUMOUR
     Dosage: 50 MG 1X DAY ORAL 50MG 12/31/08-1/11/09 25MG 2/13/09-3/12/09
     Route: 048
     Dates: start: 20081231, end: 20090111
  2. SUTENT [Suspect]
     Indication: GASTROINTESTINAL STROMAL TUMOUR
     Dosage: 50 MG 1X DAY ORAL 50MG 12/31/08-1/11/09 25MG 2/13/09-3/12/09
     Route: 048
     Dates: start: 20090213, end: 20090312

REACTIONS (8)
  - ASTHENIA [None]
  - CHEST PAIN [None]
  - DIARRHOEA [None]
  - DIZZINESS [None]
  - DYSPNOEA [None]
  - GASTROINTESTINAL PAIN [None]
  - GLOSSODYNIA [None]
  - SWOLLEN TONGUE [None]
